FAERS Safety Report 15130504 (Version 1)
Quarter: 2018Q3

REPORT INFORMATION
  Report Type: Spontaneous
  Country: JP (occurrence: JP)
  Receive Date: 20180711
  Receipt Date: 20180711
  Transmission Date: 20181010
  Serious: Yes (Death)
  Sender: FDA-Public Use
  Company Number: JP-BAYER-2018-107718

PATIENT
  Age: 60 Year
  Sex: Male

DRUGS (1)
  1. STIVARGA [Suspect]
     Active Substance: REGORAFENIB
     Indication: RECTAL CANCER
     Dosage: BID, 120MG/DAY
     Route: 048
     Dates: start: 20180411, end: 20180523

REACTIONS (4)
  - Stoma site ulcer [Not Recovered/Not Resolved]
  - Liver function test increased [Not Recovered/Not Resolved]
  - Stomatitis [Not Recovered/Not Resolved]
  - Rectal cancer [Fatal]

NARRATIVE: CASE EVENT DATE: 201805
